FAERS Safety Report 9193454 (Version 1)
Quarter: 2013Q1

REPORT INFORMATION
  Report Type: Spontaneous
  Country: BR (occurrence: BR)
  Receive Date: 20130327
  Receipt Date: 20130327
  Transmission Date: 20140127
  Serious: Yes (Other)
  Sender: FDA-Public Use
  Company Number: BR-PFIZER INC-2013084605

PATIENT
  Sex: Female

DRUGS (3)
  1. DEPO-PROVERA [Suspect]
     Dosage: UNK
     Dates: start: 2010, end: 2011
  2. DEPO-PROVERA [Suspect]
     Dosage: UNK
     Dates: start: 20120205
  3. DEPO-PROVERA [Suspect]
     Dosage: UNK
     Dates: start: 201303

REACTIONS (9)
  - Uterine cyst [Unknown]
  - Uterine enlargement [Unknown]
  - Menorrhagia [Recovered/Resolved]
  - Malaise [Not Recovered/Not Resolved]
  - Retching [Not Recovered/Not Resolved]
  - Dysmenorrhoea [Unknown]
  - Weight increased [Unknown]
  - Fatigue [Unknown]
  - Hyperhidrosis [Unknown]
